FAERS Safety Report 4796446-2 (Version None)
Quarter: 2005Q4

REPORT INFORMATION
  Report Type: 
  Country: None (occurrence: None)
  Receive Date: 20051011
  Receipt Date: 20050106
  Transmission Date: 20060501
  Serious: Yes (Hospitalization)
  Sender: FDA-Public Use
  Company Number: 2005-01-0312

PATIENT
  Sex: Female

DRUGS (1)
  1. TEMODAR [Suspect]
     Dosage: ORAL
     Route: 048

REACTIONS (1)
  - PANCYTOPENIA [None]
